FAERS Safety Report 13454601 (Version 1)
Quarter: 2017Q2

REPORT INFORMATION
  Report Type: Spontaneous
  Country: US (occurrence: US)
  Receive Date: 20170418
  Receipt Date: 20170418
  Transmission Date: 20170830
  Serious: No
  Sender: FDA-Public Use
  Company Number: US-ALLERGAN-1701232US

PATIENT
  Age: 71 Year
  Sex: Female
  Weight: 50.79 kg

DRUGS (4)
  1. LATISSE [Suspect]
     Active Substance: BIMATOPROST
     Dosage: 2 GTT, QHS
     Route: 061
  2. LEVOTHYROXINE. [Concomitant]
     Active Substance: LEVOTHYROXINE
     Indication: HYPOTHYROIDISM
     Dosage: UNK
     Dates: start: 1997
  3. TIMOLOL. [Concomitant]
     Active Substance: TIMOLOL
     Dosage: UNK
  4. LATISSE [Suspect]
     Active Substance: BIMATOPROST
     Indication: GROWTH OF EYELASHES
     Dosage: 2 GTT, QHS
     Route: 061
     Dates: start: 201612, end: 20170106

REACTIONS (6)
  - Eye irritation [Recovered/Resolved]
  - Ocular hyperaemia [Recovered/Resolved]
  - Eye pruritus [Recovered/Resolved]
  - Ocular discomfort [Recovered/Resolved]
  - Vision blurred [Recovered/Resolved]
  - Reaction to preservatives [Recovered/Resolved]

NARRATIVE: CASE EVENT DATE: 201612
